FAERS Safety Report 11906417 (Version 2)
Quarter: 2016Q1

REPORT INFORMATION
  Report Type: Spontaneous
  Country: US (occurrence: US)
  Receive Date: 20160111
  Receipt Date: 20160218
  Transmission Date: 20160526
  Serious: No
  Sender: FDA-Public Use
  Company Number: US-PFIZER INC-2015460734

PATIENT
  Age: 16 Year
  Sex: Female
  Weight: 54.42 kg

DRUGS (3)
  1. PROZAC [Suspect]
     Active Substance: FLUOXETINE HYDROCHLORIDE
     Dosage: UNK
  2. BUPROPION. [Suspect]
     Active Substance: BUPROPION
     Dosage: UNK
  3. SERTRALINE HCL [Suspect]
     Active Substance: SERTRALINE HYDROCHLORIDE
     Dosage: UNK

REACTIONS (3)
  - Dyspnoea [Unknown]
  - Tremor [Unknown]
  - Anxiety [Unknown]
